FAERS Safety Report 5246769-8 (Version None)
Quarter: 2007Q1

REPORT INFORMATION
  Report Type: 
  Country: None (occurrence: None)
  Receive Date: 20070226
  Receipt Date: 20070214
  Transmission Date: 20070707
  Serious: Yes (Hospitalization)
  Sender: FDA-Public Use
  Company Number: 2007AP00298

PATIENT
  Age: 24355 Day
  Sex: Female

DRUGS (3)
  1. XYLOCAINE [Suspect]
     Route: 013
     Dates: start: 20060106, end: 20061213
  2. ARTZ DISPO [Suspect]
     Indication: OSTEOARTHRITIS
     Dosage: } 10 INJECTIONS
     Route: 014
     Dates: start: 20060106, end: 20061213
  3. VOLTAREN [Concomitant]
     Route: 062

REACTIONS (4)
  - ARTHRITIS [None]
  - GAIT DISTURBANCE [None]
  - JOINT EFFUSION [None]
  - PYREXIA [None]
